FAERS Safety Report 9343319 (Version 3)
Quarter: 2014Q1

REPORT INFORMATION
  Report Type: Spontaneous
  Country: US (occurrence: US)
  Receive Date: 20130612
  Receipt Date: 20140321
  Transmission Date: 20141002
  Serious: Yes (Hospitalization)
  Sender: FDA-Public Use
  Company Number: US-B.I. PHARMACEUTICALS,INC./RIDGEFIELD-2013-BI-16262BP

PATIENT
  Sex: Female
  Weight: 92.99 kg

DRUGS (26)
  1. PRADAXA [Suspect]
     Indication: CEREBROVASCULAR ACCIDENT PROPHYLAXIS
     Dosage: 150 MG
     Route: 048
     Dates: start: 201102
  2. PRADAXA [Suspect]
     Indication: THROMBOSIS PROPHYLAXIS
  3. DILTIAZEM [Concomitant]
     Route: 065
  4. ISOSORBIDE [Concomitant]
     Dosage: 60 MG
     Route: 048
  5. FUROSEMIDE [Concomitant]
     Dosage: 80 MG
     Route: 048
  6. FERROUS GLUCONATE [Concomitant]
     Dosage: 972 MG
     Route: 048
  7. JANUVIA [Concomitant]
     Dosage: 100 MG
     Route: 048
  8. FERROUS SULFATE [Concomitant]
     Route: 065
  9. GLIPIZIDE [Concomitant]
     Dosage: 10 MG
     Route: 048
  10. LISINOPRIL [Concomitant]
     Dosage: 10 MG
     Route: 048
  11. PREDNISONE [Concomitant]
     Route: 065
  12. DOXYCYCLINE [Concomitant]
     Route: 065
  13. SIMVASTATIN [Concomitant]
     Dosage: 20 MG
     Route: 048
  14. PRANDIN [Concomitant]
     Route: 065
  15. SERTRALINE [Concomitant]
     Dosage: 50 MG
     Route: 065
  16. ASPIRIN [Concomitant]
     Dosage: 325 MG
     Route: 048
  17. VENTOLIN [Concomitant]
     Indication: DYSPNOEA
     Route: 065
  18. SYMBICORT [Concomitant]
     Route: 065
  19. TUMS [Concomitant]
     Route: 048
  20. CHOLESTYRAMINE LIGHT [Concomitant]
     Dosage: 4 G
     Route: 048
  21. PROCRIT [Concomitant]
     Route: 065
  22. LANTUS [Concomitant]
     Dosage: 15 U
     Route: 058
  23. MAGNESIUM [Concomitant]
     Route: 048
  24. ROBAXIN [Concomitant]
     Route: 048
  25. PRILOSEC [Concomitant]
     Dosage: 20 MG
     Route: 048
  26. SPIRIVA [Concomitant]
     Dosage: 18 MCG
     Route: 055

REACTIONS (4)
  - Chronic gastrointestinal bleeding [Unknown]
  - Epistaxis [Unknown]
  - Renal failure acute [Unknown]
  - Anaemia [Unknown]
